FAERS Safety Report 7509344-8 (Version None)
Quarter: 2011Q2

REPORT INFORMATION
  Report Type: 
  Country: None (occurrence: None)
  Receive Date: 20110527
  Receipt Date: 20110512
  Transmission Date: 20111010
  Serious: Yes (Other)
  Sender: FDA-Public Use
  Company Number: PHHY2011EC41903

PATIENT
  Sex: Female

DRUGS (2)
  1. ANTIHYPERTENSIVE DRUGS [Concomitant]
  2. ACLASTA [Suspect]
     Indication: OSTEOPOROSIS
     Dosage: 5 MG, PER 100 ML
     Route: 042
     Dates: start: 20110201

REACTIONS (5)
  - PYREXIA [None]
  - DECREASED APPETITE [None]
  - ABDOMINAL PAIN UPPER [None]
  - GASTROINTESTINAL INFECTION [None]
  - PAIN [None]
